FAERS Safety Report 21990932 (Version 1)
Quarter: 2023Q1

REPORT INFORMATION
  Report Type: Spontaneous
  Country: CA (occurrence: CA)
  Receive Date: 20230214
  Receipt Date: 20230214
  Transmission Date: 20230417
  Serious: Yes (Death, Life-Threatening, Other)
  Sender: FDA-Public Use
  Company Number: CA-FreseniusKabi-FK202301693

PATIENT
  Age: 44 Year
  Sex: Female

DRUGS (9)
  1. ETOPOSIDE [Suspect]
     Active Substance: ETOPOSIDE
     Indication: Burkitt^s lymphoma stage IV
     Dosage: CYCLICAL?DOSAGE FORM: NOT SPECIFIED
     Route: 065
  2. IFOSFAMIDE [Suspect]
     Active Substance: IFOSFAMIDE
     Indication: Burkitt^s lymphoma stage IV
     Dosage: CYCLICAL
     Route: 065
  3. CYCLOPHOSPHAMIDE [Suspect]
     Active Substance: CYCLOPHOSPHAMIDE
     Indication: Burkitt^s lymphoma stage IV
     Dosage: DOSAGE FORM: NOT SPECIFIED
     Route: 065
  4. CYTARABINE [Suspect]
     Active Substance: CYTARABINE
     Indication: Burkitt^s lymphoma stage IV
     Dosage: CYCLICAL?DOSAGE FORM: POWDER FOR SOLUTION INTRATHECAL
     Route: 065
  5. DOXORUBICIN HYDROCHLORIDE [Suspect]
     Active Substance: DOXORUBICIN HYDROCHLORIDE
     Indication: Burkitt^s lymphoma stage IV
     Dosage: CYCLICAL
     Route: 065
  6. LEUCOVORIN [Suspect]
     Active Substance: LEUCOVORIN
     Indication: Burkitt^s lymphoma stage IV
     Dosage: CYCLICAL
     Route: 065
  7. METHOTREXATE [Suspect]
     Active Substance: METHOTREXATE
     Indication: Burkitt^s lymphoma stage IV
     Dosage: CYCLICAL?DOSAGE FORM: NOT SPECIFIED
     Route: 065
  8. RITUXIMAB [Suspect]
     Active Substance: RITUXIMAB
     Indication: Burkitt^s lymphoma stage IV
     Dosage: CYCLICAL
     Route: 065
  9. VINCRISTINE [Suspect]
     Active Substance: VINCRISTINE
     Indication: Burkitt^s lymphoma stage IV
     Dosage: CYCLICAL
     Route: 065

REACTIONS (5)
  - Acute myeloid leukaemia [Fatal]
  - Gene mutation [Fatal]
  - Myelodysplastic syndrome [Fatal]
  - Off label use [Fatal]
  - Product use in unapproved indication [Fatal]
